FAERS Safety Report 22323737 (Version 1)
Quarter: 2023Q2

REPORT INFORMATION
  Report Type: Spontaneous
  Country: US (occurrence: None)
  Receive Date: 20230512
  Receipt Date: 20230512
  Transmission Date: 20230722
  Serious: Yes (Other)
  Sender: FDA-Public Use
  Company Number: None

PATIENT
  Age: 65 Year
  Sex: Male

DRUGS (2)
  1. DOCUSATE SODIUM [Suspect]
     Active Substance: DOCUSATE SODIUM
     Indication: Constipation
     Dosage: OTHER QUANTITY : 15 ML;?FREQUENCY : DAILY;?
     Route: 048
     Dates: start: 20230510, end: 20230510
  2. DULCOLAX LIQUID (MAGNESIUM HYDROXIDE) [Suspect]
     Active Substance: MAGNESIUM HYDROXIDE

REACTIONS (6)
  - Throat irritation [None]
  - Oropharyngeal pain [None]
  - Product dispensing error [None]
  - Product preparation error [None]
  - Product use complaint [None]
  - Transcription medication error [None]

NARRATIVE: CASE EVENT DATE: 20230510
